FAERS Safety Report 4298795-3 (Version None)
Quarter: 2004Q1

REPORT INFORMATION
  Report Type: 
  Country: None (occurrence: None)
  Receive Date: 20040218
  Receipt Date: 20040210
  Transmission Date: 20041129
  Serious: Yes (Life-Threatening)
  Sender: FDA-Public Use
  Company Number: WAES 0402DEU00048

PATIENT
  Age: 50 Year
  Sex: Male
  Weight: 104 kg

DRUGS (33)
  1. ACETAMINOPHEN [Suspect]
  2. AMIODARONE [Suspect]
  3. ASPIRIN [Suspect]
  4. ATORVASTATIN CALCIUM [Suspect]
     Indication: HYPERLIPIDAEMIA
     Route: 048
  5. CAPTOPRIL [Suspect]
  6. CEFOTIAM HYDROCHLORIDE [Suspect]
  7. DEXAMETHASONE [Suspect]
  8. DIAZEPAM [Suspect]
  9. DIPYRONE [Suspect]
  10. DOBUTAMINE [Suspect]
  11. DOPAMINE HYDROCHLORIDE [Suspect]
  12. ENALAPRIL MALEATE [Suspect]
  13. ENOXAPARIN SODIUM [Suspect]
  14. ENOXIMONE [Suspect]
  15. EPINEPHRINE HYDROCHLORIDE [Suspect]
  16. ETOMIDATE [Suspect]
  17. FLUNITRAZEPAM [Suspect]
  18. FUROSEMIDE [Suspect]
  19. LIDOCAINE [Suspect]
  20. LORMETAZEPAM [Suspect]
  21. LOSARTAN POTASSIUM [Suspect]
  22. NIFEDIPINE [Suspect]
  23. NOREPINEPHRINE HYDROCHLORIDE [Suspect]
  24. OMEPRAZOLE [Suspect]
  25. PANCURONIUM BROMIDE [Suspect]
  26. PIRITRAMIDE [Suspect]
  27. PROPOFOL [Suspect]
  28. RAMIPRIL [Suspect]
  29. ZOCOR [Suspect]
     Indication: HYPERLIPIDAEMIA
     Route: 048
     Dates: start: 20021119
  30. SUFENTANIL [Suspect]
  31. TIROFIBAN HYDROCHLORIDE [Suspect]
  32. TORSEMIDE [Suspect]
  33. VERAPAMIL [Suspect]

REACTIONS (2)
  - DRUG INTERACTION [None]
  - RHABDOMYOLYSIS [None]
